FAERS Safety Report 12124570 (Version 3)
Quarter: 2016Q4

REPORT INFORMATION
  Report Type: Spontaneous
  Country: BR (occurrence: BR)
  Receive Date: 20160229
  Receipt Date: 20161209
  Transmission Date: 20170206
  Serious: Yes (Other)
  Sender: FDA-Public Use
  Company Number: BR-JNJFOC-20160225079

PATIENT
  Sex: Female
  Weight: 65 kg

DRUGS (3)
  1. REMICADE [Suspect]
     Active Substance: INFLIXIMAB
     Indication: CROHN^S DISEASE
     Route: 042
  2. REMICADE [Suspect]
     Active Substance: INFLIXIMAB
     Indication: CROHN^S DISEASE
     Route: 042
     Dates: start: 2011
  3. REMICADE [Suspect]
     Active Substance: INFLIXIMAB
     Indication: CROHN^S DISEASE
     Route: 042
     Dates: start: 20151229

REACTIONS (8)
  - Depressed mood [Unknown]
  - Off label use [Unknown]
  - Product use issue [Unknown]
  - Incorrect dose administered [Unknown]
  - Arthralgia [Unknown]
  - Abdominal pain [Unknown]
  - Muscular weakness [Unknown]
  - Therapeutic response unexpected [Unknown]

NARRATIVE: CASE EVENT DATE: 2011
